FAERS Safety Report 5599912-5 (Version None)
Quarter: 2008Q1

REPORT INFORMATION
  Report Type: 
  Country: None (occurrence: None)
  Receive Date: 20080123
  Receipt Date: 20080114
  Transmission Date: 20080703
  Serious: Yes (Hospitalization)
  Sender: FDA-Public Use
  Company Number: US-TYCO HEALTHCARE/MALLINCKRODT-T200800014

PATIENT

DRUGS (6)
  1. RESTORIL [Suspect]
     Indication: SLEEP DISORDER
     Dosage: ONE CAP NIGHTLY, QD
     Route: 048
     Dates: start: 20070103, end: 20071210
  2. MAXZIDE [Concomitant]
     Indication: HYPERTENSION
     Dosage: UNK, QD
     Route: 048
  3. COZAAR [Concomitant]
     Indication: HYPERTENSION
     Dosage: 50 MG, QD
     Route: 048
  4. ASPIRIN [Concomitant]
     Dosage: 81 MG, QD
     Route: 048
  5. ACTONEL [Concomitant]
     Indication: OSTEOPENIA
     Dosage: 35 MG, WEEKLY
     Route: 048
  6. PRAVASTATIN [Concomitant]
     Dosage: 40 MG, QD
     Route: 048

REACTIONS (11)
  - AGGRESSION [None]
  - AGITATION [None]
  - AMNESIA [None]
  - ANXIETY [None]
  - CONFUSIONAL STATE [None]
  - DEPRESSION [None]
  - GAIT DISTURBANCE [None]
  - OVERDOSE [None]
  - PARANOIA [None]
  - SUICIDAL IDEATION [None]
  - VISUAL DISTURBANCE [None]
